FAERS Safety Report 4928129-X (Version None)
Quarter: 2006Q1

REPORT INFORMATION
  Report Type: 
  Country: None (occurrence: None)
  Receive Date: 20060223
  Receipt Date: 20060131
  Transmission Date: 20060701
  Serious: Yes (Other)
  Sender: FDA-Public Use
  Company Number: JP200602000306

PATIENT
  Age: 78 Year
  Sex: Female
  Weight: 53 kg

DRUGS (14)
  1. EVISTA [Suspect]
     Indication: OSTEOPOROSIS
     Dosage: 60 MG, DAILY (1/D), ORAL
     Route: 048
     Dates: start: 20051015, end: 20051217
  2. SOLETON (ZALTOPROFEN) [Concomitant]
  3. AROFUTO (AFLOQUALONE) [Concomitant]
  4. FRANDOL (ISOSORBIDE DINITRATE) TAPE [Concomitant]
  5. NORVASC [Concomitant]
  6. BLOPRESS (CANDESARTAN CILEXETIL) [Concomitant]
  7. AMOBAN (ZOPICLONE) TABLET [Concomitant]
  8. TRINOSIN (ADENOSINE TRIPHOSPHATE, DISODIUM SALT) [Concomitant]
  9. MS HOT PACK (CAMPHOR, CAPSICUM OLEORESIN, METHYLSALICYLATE) [Concomitant]
  10. VOLTAREN (DICLOFENAC SODIUM) TAPE [Concomitant]
  11. D ALFA (ALFACALCIDOL) [Concomitant]
  12. XYLOCAIN (LIDOCAINE) [Concomitant]
  13. NEUCHOLIN-A (ACETYLCHOLINE CHLORIDE) [Concomitant]
  14. HYALURONATE SODIUM (HYALURONATE SODIUM) [Concomitant]

REACTIONS (5)
  - BLEEDING TIME PROLONGED [None]
  - CHEST PAIN [None]
  - HAEMORRHAGE SUBCUTANEOUS [None]
  - PAIN IN EXTREMITY [None]
  - RASH [None]
